FAERS Safety Report 7595504-7 (Version None)
Quarter: 2011Q3

REPORT INFORMATION
  Report Type: 
  Country: None (occurrence: None)
  Receive Date: 20110707
  Receipt Date: 20110630
  Transmission Date: 20111222
  Serious: Yes (Death)
  Sender: FDA-Public Use
  Company Number: JP-SANOFI-AVENTIS-2011SA041202

PATIENT
  Age: 67 Year
  Sex: Male

DRUGS (1)
  1. AMARYL [Suspect]
     Route: 048

REACTIONS (2)
  - DRUG ADMINISTRATION ERROR [None]
  - DEATH [None]
